FAERS Safety Report 6267299-0 (Version None)
Quarter: 2009Q3

REPORT INFORMATION
  Report Type: 
  Country: None (occurrence: None)
  Receive Date: 20090714
  Receipt Date: 20090702
  Transmission Date: 20100115
  Serious: Yes (Other)
  Sender: FDA-Public Use
  Company Number: ZA-PFIZER INC-2009235712

PATIENT

DRUGS (3)
  1. ZITHROMAX [Suspect]
     Dosage: 2 G, 1X/DAY
     Route: 048
     Dates: start: 20090630, end: 20090630
  2. CONTRACEPTIVE, UNSPECIFIED [Concomitant]
     Dosage: UNK
     Route: 062
  3. MYPRODOL ^ADCOCK INGRAM^ [Concomitant]
     Route: 048

REACTIONS (6)
  - ABASIA [None]
  - ABDOMINAL PAIN [None]
  - CHEST PAIN [None]
  - HYPOAESTHESIA [None]
  - LOSS OF CONSCIOUSNESS [None]
  - VOMITING [None]
